FAERS Safety Report 4764976-5 (Version None)
Quarter: 2005Q3

REPORT INFORMATION
  Report Type: 
  Country: None (occurrence: None)
  Receive Date: 20050909
  Receipt Date: 20050830
  Transmission Date: 20060218
  Serious: Yes (Other)
  Sender: FDA-Public Use
  Company Number: FR-ROCHE-416248

PATIENT
  Age: 19 Year
  Sex: Female

DRUGS (4)
  1. CELLCEPT [Suspect]
     Route: 065
  2. CELLCEPT [Suspect]
     Route: 065
  3. CORTANCYL [Concomitant]
     Route: 065
  4. ENDOXAN [Concomitant]

REACTIONS (2)
  - CONVULSION [None]
  - EPILEPSY [None]
